FAERS Safety Report 5607959-5 (Version None)
Quarter: 2008Q1

REPORT INFORMATION
  Report Type: 
  Country: None (occurrence: None)
  Receive Date: 20080130
  Receipt Date: 20080121
  Transmission Date: 20080703
  Serious: Yes (Life-Threatening)
  Sender: FDA-Public Use
  Company Number: A0690597A

PATIENT
  Age: 59 Year
  Sex: Female
  Weight: 56 kg

DRUGS (2)
  1. LAPATINIB [Suspect]
     Indication: BREAST CANCER
     Dosage: 1500MG PER DAY
     Route: 048
     Dates: start: 20070217
  2. HALDOL [Concomitant]
     Indication: DEPRESSION
     Dosage: 2.5MG AT NIGHT
     Route: 048
     Dates: start: 20030101

REACTIONS (1)
  - SUICIDAL IDEATION [None]
